FAERS Safety Report 9234539 (Version 2)
Quarter: 2013Q2

REPORT INFORMATION
  Report Type: Spontaneous
  Country: BR (occurrence: BR)
  Receive Date: 20130416
  Receipt Date: 20130503
  Transmission Date: 20140414
  Serious: Yes (Other)
  Sender: FDA-Public Use
  Company Number: BR-BRISTOL-MYERS SQUIBB COMPANY-18765982

PATIENT
  Age: 73 Year
  Sex: Female
  Weight: 80 kg

DRUGS (4)
  1. APROZIDE [Suspect]
     Indication: HYPERTENSION
     Dosage: STARTED 5 YEARS AGO FORM: TAB?APROZIDE 300/12.5MG TABS
     Route: 048
  2. SIMVASTATIN TAB [Concomitant]
     Indication: BLOOD PRESSURE
     Dosage: 1DF:1 TBS
     Route: 048
  3. METFORMIN [Concomitant]
     Indication: DIABETES MELLITUS
     Route: 048
  4. TRADJENTA [Concomitant]
     Indication: DIABETES MELLITUS
     Dosage: 1DF:1 TB
     Route: 048

REACTIONS (7)
  - Erysipelas [Recovered/Resolved]
  - Cataract [Recovering/Resolving]
  - Neuropathy peripheral [Unknown]
  - Cartilage injury [Recovered/Resolved]
  - Spinal pain [Recovered/Resolved]
  - Thrombophlebitis [Unknown]
  - Nodule [Unknown]
